FAERS Safety Report 4883350-4 (Version None)
Quarter: 2006Q1

REPORT INFORMATION
  Report Type: 
  Country: None (occurrence: None)
  Receive Date: 20060113
  Receipt Date: 20051230
  Transmission Date: 20060701
  Serious: Yes (Hospitalization)
  Sender: FDA-Public Use
  Company Number: 2005P1000420

PATIENT
  Age: 72 Year
  Sex: Female
  Weight: 67 kg

DRUGS (11)
  1. RETEPLASE (RETEPLASE) [Suspect]
     Indication: ACUTE MYOCARDIAL INFARCTION
     Dosage: IV
     Route: 042
     Dates: start: 20050425, end: 20050425
  2. ABCIXIMAB (ABCIXIMAB) [Suspect]
     Indication: ACUTE MYOCARDIAL INFARCTION
     Dosage: IV
     Route: 042
     Dates: start: 20050425
  3. METOPROLOL [Concomitant]
  4. PERINDOPRIL [Concomitant]
  5. ATORVASTATIN CALCIUM [Concomitant]
  6. ASPIRIN [Concomitant]
  7. PERINDOPRIL [Concomitant]
  8. ATORVASTATIN CALCIUM [Concomitant]
  9. MODURETIC 5-50 [Concomitant]
  10. INSULIN [Concomitant]
  11. NPH INSULIN [Concomitant]

REACTIONS (9)
  - ANEURYSM [None]
  - BLOOD GLUCOSE INCREASED [None]
  - CALCINOSIS [None]
  - CORONARY ARTERY STENOSIS [None]
  - EJECTION FRACTION DECREASED [None]
  - MITRAL VALVE INCOMPETENCE [None]
  - SPIROMETRY ABNORMAL [None]
  - VENTRICULAR DYSKINESIA [None]
  - VITAL CAPACITY DECREASED [None]
